FAERS Safety Report 7692189-6 (Version None)
Quarter: 2011Q3

REPORT INFORMATION
  Report Type: 
  Country: None (occurrence: None)
  Receive Date: 20110818
  Receipt Date: 20110809
  Transmission Date: 20111222
  Serious: Yes (Hospitalization)
  Sender: FDA-Public Use
  Company Number: KR-B.I. PHARMACEUTICALS,INC./RIDGEFIELD-2011-BP-19620BP

PATIENT
  Sex: Female
  Weight: 73 kg

DRUGS (6)
  1. AMINOPHYLLIN TAB [Suspect]
     Indication: PNEUMONIA
     Dosage: 275 MG
     Route: 042
     Dates: start: 20110806
  2. TABACTAM [Suspect]
     Indication: PNEUMONIA
     Dosage: 13.5 G
     Route: 042
     Dates: start: 20110806
  3. PRETREATMENT [Suspect]
     Indication: IDIOPATHIC PULMONARY FIBROSIS
     Route: 048
  4. LEVOTUSS SYR [Suspect]
     Indication: PNEUMONIA
     Dosage: 135 ML
     Route: 048
     Dates: start: 20110806
  5. ATROVENT [Suspect]
     Indication: PNEUMONIA
     Dosage: 500 MCG
     Route: 055
     Dates: start: 20110806
  6. LEVOFLOXACIN [Suspect]
     Indication: PNEUMONIA
     Dosage: 250 MG
     Route: 042
     Dates: start: 20110806

REACTIONS (1)
  - PNEUMONIA [None]
